FAERS Safety Report 13405947 (Version 3)
Quarter: 2017Q2

REPORT INFORMATION
  Report Type: Spontaneous
  Country: US (occurrence: US)
  Receive Date: 20170405
  Receipt Date: 20170505
  Transmission Date: 20170830
  Serious: No
  Sender: FDA-Public Use
  Company Number: US-GLAXOSMITHKLINE-US2017GSK047151

PATIENT
  Sex: Female

DRUGS (1)
  1. SUMATRIPTAN (SUMATRIPTAN SUCCINATE) SOLUTION FOR INJECTION IN PRE-FILL [Suspect]
     Active Substance: SUMATRIPTAN
     Indication: PRODUCT USED FOR UNKNOWN INDICATION
     Dosage: 6 MG, PRN
     Route: 030
     Dates: start: 20170316

REACTIONS (4)
  - Wrong technique in device usage process [Unknown]
  - Product preparation error [Unknown]
  - Product quality issue [Unknown]
  - Incorrect route of drug administration [Unknown]
